FAERS Safety Report 16890242 (Version 2)
Quarter: 2019Q4

REPORT INFORMATION
  Report Type: Spontaneous
  Country: US (occurrence: US)
  Receive Date: 20191007
  Receipt Date: 20191106
  Transmission Date: 20200122
  Serious: Yes (Other)
  Sender: FDA-Public Use
  Company Number: US-BAYER-2019-178739

PATIENT
  Age: 17 Year
  Sex: Female
  Weight: 124.26 kg

DRUGS (8)
  1. KYLEENA [Suspect]
     Active Substance: LEVONORGESTREL
     Indication: INTRAUTERINE CONTRACEPTION
     Dosage: 17.5 MCG/24HR, CONT
     Route: 015
     Dates: start: 20190702
  2. ESTRADIOL. [Suspect]
     Active Substance: ESTRADIOL
     Dosage: 2 MG
  3. LEVOTHYROXINE. [Concomitant]
     Active Substance: LEVOTHYROXINE
     Dosage: 88 UNK
  4. DULOXETINE. [Concomitant]
     Active Substance: DULOXETINE
     Dosage: 60 MG
  5. FLOVENT HFA [Concomitant]
     Active Substance: FLUTICASONE PROPIONATE
     Dosage: 220 MG
  6. TYLENOL [Concomitant]
     Active Substance: ACETAMINOPHEN
  7. QUETIAPINE. [Concomitant]
     Active Substance: QUETIAPINE
     Dosage: 50 MG
  8. CRYSELLE [Concomitant]
     Active Substance: ETHINYL ESTRADIOL\NORGESTREL

REACTIONS (3)
  - Abdominal pain [None]
  - Menometrorrhagia [None]
  - Post procedural haemorrhage [None]

NARRATIVE: CASE EVENT DATE: 2019
